FAERS Safety Report 20855262 (Version 1)
Quarter: 2022Q2

REPORT INFORMATION
  Report Type: Report from Study
  Country: NL (occurrence: NL)
  Receive Date: 20220520
  Receipt Date: 20220520
  Transmission Date: 20220721
  Serious: Yes (Other)
  Sender: FDA-Public Use
  Company Number: NL-SA-2019SA204899

PATIENT

DRUGS (2)
  1. DUPILUMAB [Suspect]
     Active Substance: DUPILUMAB
     Indication: Dermatitis atopic
     Dosage: 600 MG, 1X, LOADING DOSE
  2. DUPILUMAB [Suspect]
     Active Substance: DUPILUMAB
     Dosage: 800 MG, QOW, INJECTION

REACTIONS (1)
  - Corneal perforation [Unknown]
